FAERS Safety Report 7726593-4 (Version None)
Quarter: 2011Q3

REPORT INFORMATION
  Report Type: 
  Country: None (occurrence: None)
  Receive Date: 20110902
  Receipt Date: 20110829
  Transmission Date: 20111222
  Serious: Yes (Death)
  Sender: FDA-Public Use
  Company Number: PHHY2011TN76970

PATIENT
  Sex: Female

DRUGS (3)
  1. GLEEVEC [Suspect]
     Indication: CHRONIC MYELOID LEUKAEMIA
     Dosage: 800 MG PER DAY
     Route: 048
     Dates: start: 20110414
  2. VINCRISTINE [Concomitant]
     Dosage: 1.5 MG/M2, DAY 8,15,22,29
  3. DEXAMETHASONE [Concomitant]
     Dosage: 6 MG/M2/DAY, FROM DAY 1 TO 14, FROM DAY 21 TO 28

REACTIONS (1)
  - DEATH [None]
